FAERS Safety Report 13443454 (Version 1)
Quarter: 2017Q2

REPORT INFORMATION
  Report Type: Spontaneous
  Country: US (occurrence: US)
  Receive Date: 20170414
  Receipt Date: 20170414
  Transmission Date: 20170830
  Serious: No
  Sender: FDA-Public Use
  Company Number: US-PIERREL PHARMA S.P.A.-2016PIR00021

PATIENT
  Age: 16 Year
  Sex: Male
  Weight: 58.96 kg

DRUGS (1)
  1. ORABLOC [Suspect]
     Active Substance: ARTICAINE HYDROCHLORIDE\EPINEPHRINE BITARTRATE
     Indication: DENTAL CARE
     Dosage: 1 CARPULE, TWICE
     Route: 004
     Dates: start: 20160607, end: 20160607

REACTIONS (1)
  - Drug ineffective [Recovered/Resolved]

NARRATIVE: CASE EVENT DATE: 20160607
